FAERS Safety Report 7535461-2 (Version None)
Quarter: 2011Q2

REPORT INFORMATION
  Report Type: 
  Country: None (occurrence: None)
  Receive Date: 20110609
  Receipt Date: 20080701
  Transmission Date: 20111010
  Serious: Yes (Death, Other)
  Sender: FDA-Public Use
  Company Number: PHHY2008CA12085

PATIENT
  Sex: Male

DRUGS (3)
  1. CLOZAPINE [Suspect]
     Indication: SCHIZOAFFECTIVE DISORDER
     Dosage: UNK
     Route: 048
     Dates: start: 20050929
  2. VALPROATE SODIUM [Concomitant]
     Dosage: 750 MG, UNK
     Route: 048
     Dates: start: 20050101
  3. ANTIBIOTICS [Concomitant]

REACTIONS (8)
  - DEATH [None]
  - URINARY RETENTION [None]
  - BLOOD URINE PRESENT [None]
  - URINARY TRACT INFECTION [None]
  - VOMITING [None]
  - FALL [None]
  - ABDOMINAL PAIN [None]
  - CONFUSIONAL STATE [None]
